FAERS Safety Report 14138375 (Version 1)
Quarter: 2017Q4

REPORT INFORMATION
  Report Type: Spontaneous
  Country: US (occurrence: US)
  Receive Date: 20171027
  Receipt Date: 20171027
  Transmission Date: 20180321
  Serious: No
  Sender: FDA-Public Use
  Company Number: US-ROCHE-1888820

PATIENT
  Sex: Female
  Weight: 30.87 kg

DRUGS (3)
  1. MOTRIN [Concomitant]
     Active Substance: IBUPROFEN
     Indication: PYREXIA
     Dosage: EVERY 4 HOURS AS NEEDED
     Route: 065
     Dates: start: 20170122, end: 20170129
  2. TAMIFLU [Suspect]
     Active Substance: OSELTAMIVIR PHOSPHATE
     Indication: INFLUENZA
     Route: 065
     Dates: start: 20170123, end: 20170130
  3. TYLENOL [Concomitant]
     Active Substance: ACETAMINOPHEN
     Indication: PYREXIA
     Dosage: EVERY FOUR HOURS AS NEEDED
     Route: 065
     Dates: start: 20170122, end: 20170129

REACTIONS (2)
  - Drug ineffective [Unknown]
  - No adverse event [Unknown]
